FAERS Safety Report 13149924 (Version 1)
Quarter: 2017Q1

REPORT INFORMATION
  Report Type: Spontaneous
  Country: JP (occurrence: JP)
  Receive Date: 20170125
  Receipt Date: 20170125
  Transmission Date: 20170428
  Serious: Yes (Hospitalization, Other)
  Sender: FDA-Public Use
  Company Number: JP-009507513-1612JPN013717

PATIENT
  Age: 38 Year
  Sex: Female

DRUGS (3)
  1. RESLIN TABLETS 50 [Suspect]
     Active Substance: TRAZODONE HYDROCHLORIDE
     Indication: DEPRESSION
     Dosage: 350 MG, UNK
     Route: 048
     Dates: start: 20161222, end: 20161222
  2. BELSOMRA [Suspect]
     Active Substance: SUVOREXANT
     Indication: INSOMNIA
     Dosage: 140 MG, UNK
     Route: 048
     Dates: start: 20161222, end: 20161222
  3. LEVOTOMIN (LEVOMEPROMAZINE MALEATE) [Suspect]
     Active Substance: LEVOMEPROMAZINE MALEATE
     Indication: SCHIZOPHRENIA
     Dosage: 525 MG, UNK
     Route: 048
     Dates: start: 20161222, end: 20161222

REACTIONS (2)
  - Suicide attempt [Unknown]
  - Intentional overdose [Unknown]

NARRATIVE: CASE EVENT DATE: 20161222
